FAERS Safety Report 7900837-8 (Version None)
Quarter: 2011Q4

REPORT INFORMATION
  Report Type: 
  Country: None (occurrence: None)
  Receive Date: 20111108
  Receipt Date: 20111108
  Transmission Date: 20120403
  Serious: Yes (Other)
  Sender: FDA-Public Use
  Company Number: None

PATIENT
  Age: 59 Year
  Sex: Female
  Weight: 52.616 kg

DRUGS (2)
  1. LISINOPRIL [Concomitant]
  2. DULCOLAX [Suspect]
     Indication: COLONOSCOPY
     Dosage: 5 MG
     Route: 048
     Dates: start: 20111106, end: 20111106

REACTIONS (10)
  - HYPERHIDROSIS [None]
  - LOSS OF CONSCIOUSNESS [None]
  - PARAESTHESIA [None]
  - MUSCLE SPASMS [None]
  - MALAISE [None]
  - HEART RATE INCREASED [None]
  - MOVEMENT DISORDER [None]
  - VERTIGO [None]
  - DYSPNOEA [None]
  - CHILLS [None]
